FAERS Safety Report 8265742-9 (Version None)
Quarter: 2012Q2

REPORT INFORMATION
  Report Type: 
  Country: None (occurrence: None)
  Receive Date: 20120403
  Receipt Date: 20120319
  Transmission Date: 20120825
  Serious: Yes (Life-Threatening)
  Sender: FDA-Public Use
  Company Number: B0791086A

PATIENT
  Sex: Male

DRUGS (1)
  1. CEFUROXIME SODIUM [Suspect]
     Indication: UPPER RESPIRATORY TRACT INFECTION
     Dosage: 3GRAM, (S)/INTRAVENOUS
     Route: 042

REACTIONS (6)
  - DIZZINESS [None]
  - STARING [None]
  - SYNCOPE [None]
  - CYANOSIS [None]
  - CONFUSIONAL STATE [None]
  - PRURITUS [None]
